FAERS Safety Report 8192670-X (Version None)
Quarter: 2012Q1

REPORT INFORMATION
  Report Type: 
  Country: None (occurrence: None)
  Receive Date: 20120308
  Receipt Date: 20120228
  Transmission Date: 20120608
  Serious: Yes (Death, Other)
  Sender: FDA-Public Use
  Company Number: US-ROXANE LABORATORIES, INC.-2012-EU-01189GD

PATIENT

DRUGS (2)
  1. METHADON HCL TAB [Suspect]
  2. MORPHINE [Suspect]

REACTIONS (3)
  - PULMONARY OEDEMA [None]
  - DRUG ABUSE [None]
  - PULMONARY CONGESTION [None]
